FAERS Safety Report 9536350 (Version 2)
Quarter: 2014Q1

REPORT INFORMATION
  Report Type: Spontaneous
  Country: AU (occurrence: AU)
  Receive Date: 20130919
  Receipt Date: 20140203
  Transmission Date: 20141002
  Serious: Yes (Other)
  Sender: FDA-Public Use
  Company Number: AU-NAPPMUNDI-USA-2013-0106445

PATIENT
  Sex: Male

DRUGS (3)
  1. MORPHINE SULFATE (SIMILAR TO NDA 19-516) [Suspect]
     Indication: PAIN
     Dosage: UNKOWN, UNKNOWN
  2. ENDONE [Concomitant]
     Indication: PAIN
  3. ANTIDEPRESSANTS [Concomitant]
     Indication: PRODUCT USED FOR UNKNOWN INDICATION

REACTIONS (5)
  - Drug dependence [Unknown]
  - Suicidal ideation [Unknown]
  - Night blindness [Unknown]
  - Anxiety [Unknown]
  - Insomnia [Unknown]
